FAERS Safety Report 7781486-1 (Version None)
Quarter: 2011Q3

REPORT INFORMATION
  Report Type: 
  Country: None (occurrence: None)
  Receive Date: 20110927
  Receipt Date: 20110912
  Transmission Date: 20111222
  Serious: Yes (Other)
  Sender: FDA-Public Use
  Company Number: RU-TEVA-301505ISR

PATIENT
  Age: 2 Year
  Sex: Female

DRUGS (1)
  1. CARBAMAZEPINE [Suspect]
     Route: 048

REACTIONS (1)
  - POISONING [None]
